FAERS Safety Report 5610617-4 (Version None)
Quarter: 2008Q1

REPORT INFORMATION
  Report Type: 
  Country: None (occurrence: None)
  Receive Date: 20080128
  Receipt Date: 20080117
  Transmission Date: 20080703
  Serious: Yes (Hospitalization)
  Sender: FDA-Public Use
  Company Number: 022198

PATIENT
  Age: 64 Year
  Sex: Female
  Weight: 58 kg

DRUGS (5)
  1. CEPHALEXIN [Suspect]
     Indication: URINARY TRACT INFECTION
     Dosage: 4 TABLET, QD, ORAL
     Route: 048
     Dates: start: 20071113, end: 20071114
  2. PROCARDIA (NIDEFIPINE) [Concomitant]
  3. VERAPAMIL [Concomitant]
  4. CLONIDINE HCL [Concomitant]
  5. ASPIRIN [Concomitant]

REACTIONS (3)
  - HYPOTENSION [None]
  - STAPHYLOCOCCAL INFECTION [None]
  - URTICARIA [None]
